FAERS Safety Report 4944228-0 (Version None)
Quarter: 2006Q1

REPORT INFORMATION
  Report Type: 
  Country: None (occurrence: None)
  Receive Date: 20060309
  Receipt Date: 20060301
  Transmission Date: 20060701
  Serious: Yes (Hospitalization, Other)
  Sender: FDA-Public Use
  Company Number: 200512908BWH

PATIENT
  Age: 36 Year
  Sex: Male

DRUGS (4)
  1. AVELOX [Suspect]
     Indication: SINUSITIS
     Dosage: 400 MG, ONCE, ORAL
     Route: 048
     Dates: start: 20051206
  2. WELLBUTRIN [Concomitant]
  3. ADVAIR DISKUS 100/50 [Concomitant]
  4. TRICOR [Concomitant]

REACTIONS (14)
  - ANAPHYLACTIC SHOCK [None]
  - CHEST PAIN [None]
  - CIRCULATORY COLLAPSE [None]
  - ERYTHEMA [None]
  - FEELING HOT [None]
  - HYPERHIDROSIS [None]
  - HYPOTENSION [None]
  - LOSS OF CONSCIOUSNESS [None]
  - MYOCARDIAL INFARCTION [None]
  - NERVOUSNESS [None]
  - ORTHOSTATIC HYPOTENSION [None]
  - POST-TRAUMATIC STRESS DISORDER [None]
  - SYNCOPE VASOVAGAL [None]
  - VASODILATATION [None]
